FAERS Safety Report 6463128-0 (Version None)
Quarter: 2009Q4

REPORT INFORMATION
  Report Type: 
  Country: None (occurrence: None)
  Receive Date: 20091124
  Receipt Date: 20091116
  Transmission Date: 20100525
  Serious: Yes (Death, Hospitalization)
  Sender: FDA-Public Use
  Company Number: 2009AC000108

PATIENT
  Age: 67 Year
  Sex: Male

DRUGS (10)
  1. DIGOXIN [Suspect]
     Dosage: 0.25 MG;QD;PO
     Route: 048
     Dates: start: 20060126
  2. GLUCOTROL [Concomitant]
  3. JANUVIA [Concomitant]
  4. COUMADIN [Concomitant]
  5. GABAPENTIN [Concomitant]
  6. SPIRIVA [Concomitant]
  7. MIRTAZAPINE [Concomitant]
  8. AMBIEN [Concomitant]
  9. NORVASC [Concomitant]
  10. CYCLOBENZAPRINE [Concomitant]

REACTIONS (17)
  - ATRIAL FIBRILLATION [None]
  - CARDIAC FAILURE CONGESTIVE [None]
  - CERUMEN IMPACTION [None]
  - CORONARY ARTERY DISEASE [None]
  - DEPRESSION [None]
  - DIABETES MELLITUS [None]
  - ECONOMIC PROBLEM [None]
  - HYPOAESTHESIA [None]
  - MULTIPLE INJURIES [None]
  - MYOCARDIAL INFARCTION [None]
  - PAIN IN EXTREMITY [None]
  - PLEURAL EFFUSION [None]
  - PNEUMONIA [None]
  - POOR QUALITY SLEEP [None]
  - PSORIASIS [None]
  - RENAL FAILURE [None]
  - URINARY RETENTION [None]
